FAERS Safety Report 18327723 (Version 1)
Quarter: 2020Q3

REPORT INFORMATION
  Report Type: Spontaneous
  Country: BR (occurrence: BR)
  Receive Date: 20200930
  Receipt Date: 20200930
  Transmission Date: 20201103
  Serious: Yes (Other)
  Sender: FDA-Public Use
  Company Number: BR-GLAXOSMITHKLINE-BR2020191866

PATIENT
  Sex: Female

DRUGS (1)
  1. WELLBUTRIN XL [Suspect]
     Active Substance: BUPROPION HYDROCHLORIDE
     Indication: DEPRESSION
     Dosage: 150 MG, QD
     Dates: start: 20200827

REACTIONS (8)
  - Arrhythmia [Unknown]
  - Vision blurred [Unknown]
  - Abdominal pain [Unknown]
  - Discomfort [Unknown]
  - Depressed mood [Unknown]
  - Dry mouth [Unknown]
  - Dysgeusia [Unknown]
  - Tremor [Unknown]
